FAERS Safety Report 4715372-8 (Version None)
Quarter: 2005Q3

REPORT INFORMATION
  Report Type: 
  Country: None (occurrence: None)
  Receive Date: 20050715
  Receipt Date: 20050311
  Transmission Date: 20060218
  Serious: Yes (Hospitalization, Other)
  Sender: FDA-Public Use
  Company Number: US-MERCK-0503USA02694

PATIENT
  Age: 59 Year
  Sex: Female
  Weight: 45 kg

DRUGS (4)
  1. VIOXX [Suspect]
     Route: 048
     Dates: start: 20020101, end: 20041001
  2. PREMARIN [Concomitant]
     Route: 065
  3. NORVASC [Concomitant]
     Route: 065
  4. ATENOLOL [Concomitant]
     Route: 065

REACTIONS (9)
  - ANXIETY DISORDER [None]
  - CHRONIC FATIGUE SYNDROME [None]
  - CORONARY ARTERY DISEASE [None]
  - DEPRESSION [None]
  - DISTURBANCE IN ATTENTION [None]
  - GASTRIC DISORDER [None]
  - HEART RATE IRREGULAR [None]
  - MYOCARDIAL INFARCTION [None]
  - SLEEP APNOEA SYNDROME [None]
